FAERS Safety Report 9256371 (Version 2)
Quarter: 2013Q2

REPORT INFORMATION
  Report Type: Spontaneous
  Country: US (occurrence: US)
  Receive Date: 20130425
  Receipt Date: 20130430
  Transmission Date: 20140414
  Serious: No
  Sender: FDA-Public Use
  Company Number: US-009507513-1304USA013829

PATIENT
  Age: 78 Year
  Sex: Male

DRUGS (1)
  1. SINEMET CR [Suspect]
     Indication: PARKINSON^S DISEASE
     Dosage: 50/200 MG, TID
     Route: 048
     Dates: start: 20130415, end: 20130420

REACTIONS (5)
  - Tremor [Recovered/Resolved]
  - Mental impairment [Recovered/Resolved]
  - Balance disorder [Recovered/Resolved]
  - Gait disturbance [Recovered/Resolved]
  - Drug effect decreased [Unknown]
